FAERS Safety Report 19890697 (Version 1)
Quarter: 2021Q3

REPORT INFORMATION
  Report Type: Spontaneous
  Country: CA (occurrence: CA)
  Receive Date: 20210927
  Receipt Date: 20210927
  Transmission Date: 20211014
  Serious: Yes (Other)
  Sender: FDA-Public Use
  Company Number: CA-PURDUE-USA-2021-0285185

PATIENT
  Age: 9 Year
  Sex: Male

DRUGS (5)
  1. BIPHENTIN [Suspect]
     Active Substance: METHYLPHENIDATE
     Dosage: 10 MG, AM
     Route: 065
     Dates: start: 20210910
  2. BIPHENTIN [Suspect]
     Active Substance: METHYLPHENIDATE
     Indication: ATTENTION DEFICIT HYPERACTIVITY DISORDER
     Dosage: 10 MG, AM
     Route: 065
     Dates: start: 20210915
  3. BIPHENTIN [Suspect]
     Active Substance: METHYLPHENIDATE
     Dosage: 10 MG, AM
     Route: 065
     Dates: start: 20210909
  4. BIPHENTIN [Suspect]
     Active Substance: METHYLPHENIDATE
     Dosage: 10 MG, AM
     Route: 065
     Dates: start: 20210914
  5. BIPHENTIN [Suspect]
     Active Substance: METHYLPHENIDATE
     Dosage: 10 MG, AM
     Route: 065
     Dates: start: 20210913

REACTIONS (4)
  - School refusal [Unknown]
  - Dyskinesia [Unknown]
  - Eye movement disorder [Not Recovered/Not Resolved]
  - Tic [Unknown]

NARRATIVE: CASE EVENT DATE: 20210915
